FAERS Safety Report 5776423-5 (Version None)
Quarter: 2008Q2

REPORT INFORMATION
  Report Type: 
  Country: None (occurrence: None)
  Receive Date: 20080617
  Receipt Date: 20080617
  Transmission Date: 20081010
  Serious: No
  Sender: FDA-Public Use
  Company Number: None

PATIENT
  Sex: Female
  Weight: 48.9885 kg

DRUGS (1)
  1. DIGITEK .125 MG [Suspect]
     Indication: ATRIAL FIBRILLATION
     Dosage: DIGITEK .125 MG 1 TAB ODD # DAYS 2 TABS EVEN # DAYS
     Dates: start: 19900125

REACTIONS (6)
  - DIZZINESS [None]
  - FACIAL BONES FRACTURE [None]
  - FALL [None]
  - PHARMACEUTICAL PRODUCT COMPLAINT [None]
  - SKIN LACERATION [None]
  - WALKING AID USER [None]
